FAERS Safety Report 6417994-5 (Version None)
Quarter: 2009Q4

REPORT INFORMATION
  Report Type: 
  Country: None (occurrence: None)
  Receive Date: 20091015
  Receipt Date: 20090930
  Transmission Date: 20100525
  Serious: Yes (Hospitalization)
  Sender: FDA-Public Use
  Company Number: 20090930CINRY1164

PATIENT
  Age: 39 Year
  Sex: Female

DRUGS (2)
  1. CINRYZE [Suspect]
     Indication: HEREDITARY ANGIOEDEMA
     Dosage: (1500 UNIT, 2 IN 1 WK), INTRAVENOUS
     Route: 042
     Dates: start: 20080701
  2. CINRYZE [Suspect]
     Indication: PROPHYLAXIS
     Dosage: (1500 UNIT, 2 IN 1 WK), INTRAVENOUS
     Route: 042
     Dates: start: 20080701

REACTIONS (5)
  - ANGIOEDEMA [None]
  - ASTHMA [None]
  - CONDITION AGGRAVATED [None]
  - DYSPHAGIA [None]
  - SINUSITIS [None]
